FAERS Safety Report 5084547-3 (Version None)
Quarter: 2006Q3

REPORT INFORMATION
  Report Type: 
  Country: None (occurrence: None)
  Receive Date: 20060821
  Receipt Date: 20060815
  Transmission Date: 20061208
  Serious: Yes (Hospitalization)
  Sender: FDA-Public Use
  Company Number: NL-MERCK-0608NLD00009

PATIENT
  Age: 51 Year
  Sex: Female

DRUGS (2)
  1. FOSAMAX PLUS D [Suspect]
     Indication: OSTEOPOROSIS
     Route: 048
     Dates: start: 20060601
  2. CALCIUM CARBONATE [Concomitant]
     Indication: OSTEOPOROSIS
     Route: 065
     Dates: start: 20060601

REACTIONS (1)
  - PALPITATIONS [None]
